FAERS Safety Report 9697671 (Version 1)
Quarter: 2013Q4

REPORT INFORMATION
  Report Type: Spontaneous
  Country: US (occurrence: US)
  Receive Date: 20131120
  Receipt Date: 20131120
  Transmission Date: 20140711
  Serious: No
  Sender: FDA-Public Use
  Company Number: US-PFIZER INC-2013328803

PATIENT
  Sex: Male

DRUGS (1)
  1. XALKORI [Suspect]
     Indication: NON-SMALL CELL LUNG CANCER METASTATIC
     Dosage: UNK
     Dates: start: 201202, end: 201309

REACTIONS (3)
  - Disease progression [Unknown]
  - Non-small cell lung cancer metastatic [Unknown]
  - Gastrointestinal disorder [Unknown]
